FAERS Safety Report 5839221-X (Version None)
Quarter: 2008Q3

REPORT INFORMATION
  Report Type: 
  Country: None (occurrence: None)
  Receive Date: 20080808
  Receipt Date: 20080731
  Transmission Date: 20090109
  Serious: Yes (Other)
  Sender: FDA-Public Use
  Company Number: US-PFIZER INC-2008051782

PATIENT
  Sex: Female
  Weight: 84.8 kg

DRUGS (7)
  1. LIPITOR [Suspect]
     Indication: CATHETERISATION CARDIAC
     Dates: start: 20080304, end: 20080413
  2. PLAVIX [Suspect]
     Indication: HYPERTENSION
     Route: 048
     Dates: start: 20080304
  3. PLAVIX [Suspect]
     Indication: CATHETERISATION CARDIAC
  4. TICLID [Suspect]
  5. METOPROLOL SUCCINATE [Concomitant]
     Indication: MYOCARDIAL INFARCTION
  6. ACETYLSALICYLIC ACID SRT [Concomitant]
     Indication: MYOCARDIAL INFARCTION
  7. RAMIPRIL [Concomitant]
     Indication: MYOCARDIAL INFARCTION

REACTIONS (5)
  - AGEUSIA [None]
  - DEHYDRATION [None]
  - DYSGEUSIA [None]
  - REGURGITATION [None]
  - WEIGHT DECREASED [None]
